FAERS Safety Report 23333610 (Version 2)
Quarter: 2023Q4

REPORT INFORMATION
  Report Type: Spontaneous
  Country: JP (occurrence: JP)
  Receive Date: 20231222
  Receipt Date: 20231228
  Transmission Date: 20240109
  Serious: Yes (Death, Other)
  Sender: FDA-Public Use
  Company Number: JP-ABBVIE-5552419

PATIENT
  Age: 70 Year
  Sex: Male

DRUGS (15)
  1. VENCLEXTA [Suspect]
     Active Substance: VENETOCLAX
     Indication: Acute myeloid leukaemia
     Dosage: START DATE: MAR 2023
     Route: 048
     Dates: end: 20230414
  2. VENCLEXTA [Suspect]
     Active Substance: VENETOCLAX
     Indication: Acute myeloid leukaemia
     Route: 048
     Dates: start: 20230228, end: 20230306
  3. PIOGLITAZONE [Concomitant]
     Active Substance: PIOGLITAZONE
     Indication: Product used for unknown indication
     Dosage: PIOGLITAZONE HYDROCHLORIDE
  4. Posaconazole eg [Concomitant]
     Indication: Product used for unknown indication
     Dosage: POSACONAZOLE
     Dates: start: 202303, end: 20230411
  5. OLMESARTAN MEDOXOMIL [Concomitant]
     Active Substance: OLMESARTAN MEDOXOMIL
     Indication: Product used for unknown indication
     Dosage: OLMESARTAN MEDOXOMIL
  6. AZACITIDINE [Concomitant]
     Active Substance: AZACITIDINE
     Indication: Acute myeloid leukaemia
     Dates: start: 20230228
  7. CYTARABINE [Concomitant]
     Active Substance: CYTARABINE
     Indication: Acute myeloid leukaemia
     Dosage: LAST ADMIN DATE: JUN 2023
     Dates: start: 20230206
  8. CYTARABINE [Concomitant]
     Active Substance: CYTARABINE
     Indication: Acute myeloid leukaemia
     Dates: start: 20230907
  9. NAPROXEN [Concomitant]
     Active Substance: NAPROXEN
     Indication: Product used for unknown indication
     Dates: end: 20230413
  10. INSULIN DETEMIR DCI [Concomitant]
     Indication: Product used for unknown indication
     Dosage: 6 UNIT? (GENETICAL RECOMBINATION)
  11. Vildagliptin/metformin hydrochloride accord [Concomitant]
     Indication: Product used for unknown indication
  12. AMPHOTERICIN B [Concomitant]
     Active Substance: AMPHOTERICIN B
     Indication: Product used for unknown indication
     Dates: start: 20230411
  13. MEROPENEM [Concomitant]
     Active Substance: MEROPENEM
     Indication: Product used for unknown indication
     Dosage: MEROPENEM HYDRATE
  14. CASPOFUNGIN [Concomitant]
     Active Substance: CASPOFUNGIN
     Indication: Product used for unknown indication
     Dosage: CASPOFUNGIN ACETATE
     Dates: start: 202303, end: 202303
  15. VANCOMYCIN HYDROCHLORIDE [Concomitant]
     Active Substance: VANCOMYCIN HYDROCHLORIDE
     Indication: Product used for unknown indication

REACTIONS (10)
  - Death [Fatal]
  - Drug ineffective [Unknown]
  - Acute myeloid leukaemia recurrent [Unknown]
  - Bronchopulmonary aspergillosis [Unknown]
  - Haemophagocytic lymphohistiocytosis [Unknown]
  - Myelosuppression [Unknown]
  - Lung disorder [Unknown]
  - Pneumonia fungal [Unknown]
  - Liver disorder [Unknown]
  - Disease risk factor [Unknown]

NARRATIVE: CASE EVENT DATE: 20230101
